FAERS Safety Report 21998297 (Version 1)
Quarter: 2023Q1

REPORT INFORMATION
  Report Type: Spontaneous
  Country: DE (occurrence: DE)
  Receive Date: 20230216
  Receipt Date: 20230216
  Transmission Date: 20230418
  Serious: Yes (Other)
  Sender: FDA-Public Use
  Company Number: DE-ALKEM LABORATORIES LIMITED-DE-ALKEM-2023-01289

PATIENT
  Age: 26 Year
  Sex: Male

DRUGS (1)
  1. FINGOLIMOD [Suspect]
     Active Substance: FINGOLIMOD
     Indication: Multiple sclerosis
     Dosage: 1 DOSAGE FORM, QD (EVERY 1 DAY), CAPSULE, HARD
     Route: 065
     Dates: start: 20200430, end: 2022

REACTIONS (2)
  - Multiple sclerosis relapse [Unknown]
  - Monoparesis [Unknown]

NARRATIVE: CASE EVENT DATE: 20230121
